FAERS Safety Report 7119806-3 (Version None)
Quarter: 2010Q4

REPORT INFORMATION
  Report Type: 
  Country: None (occurrence: None)
  Receive Date: 20101123
  Receipt Date: 20100922
  Transmission Date: 20110411
  Serious: No
  Sender: FDA-Public Use
  Company Number: US-BRISTOL-MYERS SQUIBB COMPANY-15255250

PATIENT
  Age: 78 Year
  Sex: Male

DRUGS (18)
  1. ONGLYZA [Suspect]
     Dosage: DOSE REDUCED TO 2.5MG/DAY
     Dates: start: 20100723
  2. ALLOPURINOL [Concomitant]
     Dosage: 300 UNITS NOS (1/2 QD)
  3. PROBENECID [Concomitant]
     Dosage: 500 UNITS NOS
  4. ZOLOFT [Concomitant]
     Dosage: 50 UNITS NOS (1/2 HS) AT NIGHT
  5. PRILOSEC [Concomitant]
     Dosage: 20 QAM UNITS NOS AT MORNING
  6. GLUCOVANCE [Concomitant]
     Dosage: 1000 UNITS NOS
  7. GLYBURIDE [Concomitant]
     Dosage: 2 TAB
  8. NIACIN TABS [Concomitant]
     Dosage: 1DF=250 UNITS NOS 2 TABS
  9. HYDROCHLOROTHIAZIDE [Concomitant]
     Dosage: 12.5/50 UNITS NOS
  10. COREG [Concomitant]
     Dosage: 12.5 UNITS NOS
  11. COLCHICINE [Concomitant]
     Dosage: 0.6 UNITS NOS
  12. VITAMIN E [Concomitant]
     Dosage: 400 UNITS NOS
  13. MULTI-VITAMIN [Concomitant]
  14. FOLIC ACID [Concomitant]
  15. ACYCLOVIR [Concomitant]
     Dosage: 200 UNITS NOS
  16. NORVASC [Concomitant]
     Dosage: 10 UNITS NOS
  17. ASA [Concomitant]
  18. KCL RETARD [Concomitant]

REACTIONS (1)
  - HEPATIC ENZYME INCREASED [None]
